FAERS Safety Report 6676788-6 (Version None)
Quarter: 2010Q1

REPORT INFORMATION
  Report Type: 
  Country: None (occurrence: None)
  Receive Date: 20100331
  Receipt Date: 20090709
  Transmission Date: 20100710
  Serious: No
  Sender: FDA-Public Use
  Company Number: 2009-00538

PATIENT
  Age: 68 Year
  Sex: Male
  Weight: 84.8226 kg

DRUGS (8)
  1. ZICAM COLD REMEDY GEL SWABS [Suspect]
     Dosage: APPROXIMATELY 7 YRS AGO
  2. ZICAM COLD REMEDY NASAL GEL [Suspect]
     Dosage: APPROXIMATELY 7 YRS AGO
  3. VERAPAMIL [Concomitant]
  4. LISINOPRIL [Concomitant]
  5. TERAZOSIN HCL [Concomitant]
  6. PROPECIA [Concomitant]
  7. FISH OIL [Concomitant]
  8. MULTI-VITAMIN [Concomitant]

REACTIONS (1)
  - ANOSMIA [None]
